FAERS Safety Report 9203594 (Version 1)
Quarter: 2013Q2

REPORT INFORMATION
  Report Type: Spontaneous
  Country: US (occurrence: US)
  Receive Date: 20130402
  Receipt Date: 20130402
  Transmission Date: 20140414
  Serious: Yes (Other)
  Sender: FDA-Public Use
  Company Number: US-BAYER-2013-036744

PATIENT
  Age: 26 Year
  Sex: Female
  Weight: 99.77 kg

DRUGS (12)
  1. YAZ [Suspect]
     Indication: DYSMENORRHOEA
     Dosage: UNK
  2. YAZ [Suspect]
     Indication: MENSTRUATION IRREGULAR
  3. YASMIN [Suspect]
     Indication: DYSMENORRHOEA
     Dosage: UNK
  4. YASMIN [Suspect]
     Indication: MENSTRUATION IRREGULAR
  5. YASMIN [Suspect]
     Indication: CONTRACEPTION
  6. VYVANSE [Concomitant]
     Dosage: 30 MG, UNK
     Route: 048
     Dates: start: 20100927
  7. TRAMADOL [Concomitant]
     Dosage: 50 MG, UNK
     Route: 048
     Dates: start: 20100904
  8. D-AMPHETAMINE SALT COMBO [Concomitant]
     Dosage: 15 MG, UNK
     Route: 048
     Dates: start: 20100810
  9. DARVOCET-N [Concomitant]
     Dosage: 50-325 MG
     Route: 048
     Dates: start: 20100909
  10. ADDERALL [Concomitant]
     Dosage: 15 MG, UNK
     Route: 048
     Dates: start: 20100909
  11. LEXAPRO [Concomitant]
     Dosage: 10 MG, UNK
     Route: 048
     Dates: start: 200903, end: 201009
  12. OMNICEF [Concomitant]
     Dosage: 300 MG, UNK
     Route: 048
     Dates: start: 200902, end: 201009

REACTIONS (1)
  - Deep vein thrombosis [Recovered/Resolved]
